FAERS Safety Report 4523843-2 (Version None)
Quarter: 2004Q4

REPORT INFORMATION
  Report Type: 
  Country: None (occurrence: None)
  Receive Date: 20041029
  Receipt Date: 20040923
  Transmission Date: 20050328
  Serious: No
  Sender: FDA-Public Use
  Company Number: 200417310US

PATIENT
  Sex: Female

DRUGS (2)
  1. TELITHROMYCIN (KETEK) TABLETS [Suspect]
     Indication: ACUTE SINUSITIS
     Dosage: 800 MG QD PO
     Route: 048
     Dates: start: 20040918, end: 20040920
  2. TELITHROMYCIN (KETEK) TABLETS [Suspect]
     Indication: SINUSITIS BACTERIAL
     Dosage: 800 MG QD PO
     Route: 048
     Dates: start: 20040918, end: 20040920

REACTIONS (3)
  - ARTHRALGIA [None]
  - DYSPNOEA [None]
  - PETECHIAE [None]
